FAERS Safety Report 7523391-1 (Version None)
Quarter: 2011Q2

REPORT INFORMATION
  Report Type: 
  Country: None (occurrence: None)
  Receive Date: 20110603
  Receipt Date: 20110527
  Transmission Date: 20111010
  Serious: Yes (Death)
  Sender: FDA-Public Use
  Company Number: B0723042A

PATIENT
  Age: 75 Year
  Sex: Male

DRUGS (2)
  1. AVANDAMET [Suspect]
     Route: 048
     Dates: start: 20041201, end: 20060501
  2. AVANDIA [Suspect]
     Route: 048
     Dates: start: 20050101

REACTIONS (3)
  - HYPERTENSION [None]
  - MYOCARDIAL INFARCTION [None]
  - ARTERIOSCLEROSIS [None]
